FAERS Safety Report 5064116-1 (Version None)
Quarter: 2006Q3

REPORT INFORMATION
  Report Type: 
  Country: None (occurrence: None)
  Receive Date: 20060706
  Receipt Date: 20060420
  Transmission Date: 20061208
  Serious: No
  Sender: FDA-Public Use
  Company Number: 200610681BWH

PATIENT
  Age: 87 Year
  Sex: Male

DRUGS (8)
  1. LEVITRA [Suspect]
     Indication: ERECTILE DYSFUNCTION
     Dosage: SEE IMAGE
     Route: 048
  2. COUMADIN [Concomitant]
  3. MONOPRIL [Concomitant]
  4. PERSANTINE [Concomitant]
  5. VERAPAMIL [Concomitant]
  6. MAXXID [Concomitant]
  7. LASIX [Concomitant]
  8. ZOCOR [Concomitant]

REACTIONS (2)
  - DRUG EFFECT DECREASED [None]
  - ERECTILE DYSFUNCTION [None]
